FAERS Safety Report 8531090-2 (Version None)
Quarter: 2012Q3

REPORT INFORMATION
  Report Type: 
  Country: None (occurrence: None)
  Receive Date: 20120723
  Receipt Date: 20120712
  Transmission Date: 20120928
  Serious: Yes (Hospitalization, Other)
  Sender: FDA-Public Use
  Company Number: FR-CELGENEUS-056-21880-12033570

PATIENT
  Sex: Male

DRUGS (3)
  1. REVLIMID [Suspect]
     Route: 048
     Dates: start: 20111220, end: 20120227
  2. BORTEZOMIB [Suspect]
     Route: 065
     Dates: start: 20111220, end: 20120224
  3. DEXAMETHASONE [Suspect]
     Route: 065
     Dates: start: 20111220, end: 20120225

REACTIONS (1)
  - PERITONITIS [None]
